FAERS Safety Report 19024666 (Version 2)
Quarter: 2021Q1

REPORT INFORMATION
  Report Type: Spontaneous
  Country: US (occurrence: US)
  Receive Date: 20210318
  Receipt Date: 20210322
  Transmission Date: 20210420
  Serious: No
  Sender: FDA-Public Use
  Company Number: NVSC2021US059291

PATIENT
  Sex: Male

DRUGS (1)
  1. COSENTYX [Suspect]
     Active Substance: SECUKINUMAB
     Indication: MIGRAINE
     Dosage: 300 MG, QMO
     Route: 058
     Dates: start: 20201211

REACTIONS (2)
  - Migraine [Unknown]
  - Product use in unapproved indication [Unknown]
